FAERS Safety Report 7085978-2 (Version None)
Quarter: 2010Q4

REPORT INFORMATION
  Report Type: 
  Country: None (occurrence: None)
  Receive Date: 20101006
  Receipt Date: 20091103
  Transmission Date: 20110411
  Serious: Yes (Other)
  Sender: FDA-Public Use
  Company Number: 422705

PATIENT
  Age: 5 Year
  Sex: Male
  Weight: 17.0099 kg

DRUGS (12)
  1. METHOTREXATE [Suspect]
     Indication: PRODUCT USED FOR UNKNOWN INDICATION
     Dosage: 3.6 MG, 1 DAY, INTRAVENOUS
     Route: 042
     Dates: start: 20090903, end: 20090903
  2. METHOTREXATE [Suspect]
     Indication: PRODUCT USED FOR UNKNOWN INDICATION
     Dosage: 3.6 MG, 1 DAY, INTRAVENOUS
     Route: 042
     Dates: start: 20090905, end: 20090905
  3. VORICONAZOLE [Suspect]
     Indication: ANTIFUNGAL PROPHYLAXIS
     Dosage: 120 MG, INTRAVENOUS
     Route: 042
     Dates: start: 20090904, end: 20090907
  4. VORICONAZOLE [Suspect]
     Indication: ANTIFUNGAL PROPHYLAXIS
     Dosage: 120 MG, INTRAVENOUS
     Route: 042
     Dates: start: 20090910
  5. CEFTAZIDIME [Concomitant]
  6. CLINDAMYCIN INJ, USP, 300, 600, + 900 MG (150 MG/ML), FLIPTOP (CLINDAM [Concomitant]
  7. LANSOPRAZOLE [Concomitant]
  8. CYCLOSPORINE [Concomitant]
  9. ACYCLOVIR SODIUM INJECTION (ACICLOVIR) [Concomitant]
  10. ONDANSETRON [Concomitant]
  11. ACETAMINOPHEN [Concomitant]
  12. MORPHINE SULFATE [Concomitant]

REACTIONS (2)
  - ALANINE AMINOTRANSFERASE INCREASED [None]
  - ASPARTATE AMINOTRANSFERASE INCREASED [None]
